FAERS Safety Report 18427287 (Version 2)
Quarter: 2020Q4

REPORT INFORMATION
  Report Type: Spontaneous
  Country: US (occurrence: US)
  Receive Date: 20201026
  Receipt Date: 20201028
  Transmission Date: 20210114
  Serious: No
  Sender: FDA-Public Use
  Company Number: US-PROCTER+GAMBLE-GS20120395

PATIENT
  Age: 4 Year

DRUGS (1)
  1. VICKS VAPORUB [Suspect]
     Active Substance: CAMPHOR (SYNTHETIC)\EUCALYPTUS OIL\MENTHOL
     Route: 048

REACTIONS (5)
  - Toxicity to various agents [Unknown]
  - Accidental exposure to product by child [Unknown]
  - Tonic convulsion [Unknown]
  - Exposure via ingestion [Unknown]
  - Vomiting [Unknown]
